FAERS Safety Report 6639784-0 (Version None)
Quarter: 2010Q1

REPORT INFORMATION
  Report Type: 
  Country: None (occurrence: None)
  Receive Date: 20100318
  Receipt Date: 20100309
  Transmission Date: 20100710
  Serious: Yes (Hospitalization)
  Sender: FDA-Public Use
  Company Number: US-ALLERGAN-1003108US

PATIENT
  Age: 70 Year
  Sex: Female

DRUGS (16)
  1. BOTOX [Suspect]
     Indication: IMPAIRED GASTRIC EMPTYING
     Dosage: UNK
     Route: 030
     Dates: start: 20100216, end: 20100216
  2. PROZAC [Concomitant]
  3. SYNTHROID [Concomitant]
  4. DIOVAN HCT [Concomitant]
  5. ZETIA [Concomitant]
  6. CAPADEX [Concomitant]
  7. TYLENOL-500 [Concomitant]
  8. ALEVE (CAPLET) [Concomitant]
  9. SIMTOM SILVER [Concomitant]
  10. ASPIRIN [Concomitant]
  11. CITRACAL-D [Concomitant]
  12. LUTEIN [Concomitant]
  13. VITAMIN-MINERAL COMPOUND TAB [Concomitant]
  14. IRON [Concomitant]
  15. VITAMIN D [Concomitant]
  16. FISH OIL [Concomitant]

REACTIONS (2)
  - DYSPNOEA [None]
  - SPEECH DISORDER [None]
